FAERS Safety Report 6139542-X (Version None)
Quarter: 2009Q1

REPORT INFORMATION
  Report Type: 
  Country: None (occurrence: None)
  Receive Date: 20090324
  Receipt Date: 20090306
  Transmission Date: 20090719
  Serious: Yes (Other)
  Sender: FDA-Public Use
  Company Number: LIT-001-09-GB

PATIENT
  Age: 33 Year
  Sex: Female

DRUGS (5)
  1. IMMUNE GLOBULIN INTRAVENOUS (HUMAN) [Suspect]
     Indication: IDIOPATHIC THROMBOCYTOPENIC PURPURA
     Dosage: I.V.
     Route: 042
  2. ASPIRIN [Suspect]
     Indication: ANTIPHOSPHOLIPID SYNDROME
     Dosage: 75 MG
  3. AZATHIOPRINE [Suspect]
     Indication: IDIOPATHIC THROMBOCYTOPENIC PURPURA
  4. DALTEPARIN SODIUM [Suspect]
     Indication: ANTIPHOSPHOLIPID SYNDROME
     Dosage: 17500 IU
  5. STERIODS (STEROID) [Suspect]
     Indication: IDIOPATHIC THROMBOCYTOPENIC PURPURA

REACTIONS (13)
  - CAESAREAN SECTION [None]
  - CEREBRAL ISCHAEMIA [None]
  - DRUG EXPOSURE DURING PREGNANCY [None]
  - DRUG INEFFECTIVE [None]
  - DYSPHAGIA [None]
  - FALL [None]
  - HAEMOGLOBIN DECREASED [None]
  - PREMATURE LABOUR [None]
  - PREMATURE RUPTURE OF MEMBRANES [None]
  - SPLENECTOMY [None]
  - THROMBOCYTOPENIA [None]
  - THROMBOTIC STROKE [None]
  - TRANSVERSE PRESENTATION [None]
